FAERS Safety Report 12493440 (Version 1)
Quarter: 2016Q2

REPORT INFORMATION
  Report Type: Spontaneous
  Country: CH (occurrence: CH)
  Receive Date: 20160623
  Receipt Date: 20160623
  Transmission Date: 20160815
  Serious: Yes (Hospitalization)
  Sender: FDA-Public Use
  Company Number: CH-GE HEALTHCARE MEDICAL DIAGNOSTICS-OMPQ-PR-1606S-1016

PATIENT
  Age: 61 Year
  Sex: Female

DRUGS (4)
  1. ACCUPAQUE [Suspect]
     Active Substance: IOHEXOL
     Indication: ANAL INCONTINENCE
     Dosage: DOSE NOT REPORTED
     Route: 042
     Dates: start: 20160520, end: 20160520
  2. ELTROXIN [Concomitant]
     Active Substance: LEVOTHYROXINE
  3. ACCUPAQUE [Suspect]
     Active Substance: IOHEXOL
     Indication: RECTAL PROLAPSE
  4. ACCUPAQUE [Suspect]
     Active Substance: IOHEXOL
     Indication: DIAGNOSTIC PROCEDURE

REACTIONS (5)
  - Vomiting [Recovered/Resolved]
  - Erythema [Recovered/Resolved]
  - Hypersensitivity [Recovered/Resolved]
  - Tachypnoea [Recovered/Resolved]
  - Dyspnoea [Recovered/Resolved]

NARRATIVE: CASE EVENT DATE: 20160520
